FAERS Safety Report 13835057 (Version 1)
Quarter: 2017Q3

REPORT INFORMATION
  Report Type: Spontaneous
  Country: US (occurrence: US)
  Receive Date: 20170804
  Receipt Date: 20170804
  Transmission Date: 20171127
  Serious: No
  Sender: FDA-Public Use
  Company Number: US-BRISTOL-MYERS SQUIBB COMPANY-BMS-2017-069560

PATIENT
  Sex: Male
  Weight: 126.5 kg

DRUGS (1)
  1. YERVOY [Suspect]
     Active Substance: IPILIMUMAB
     Indication: MALIGNANT MELANOMA
     Dosage: 1 DF, Q3WK
     Route: 042
     Dates: start: 20170214

REACTIONS (3)
  - Pruritus [Recovered/Resolved]
  - Visual impairment [Unknown]
  - Rash [Recovered/Resolved]
